FAERS Safety Report 7679612-8 (Version None)
Quarter: 2011Q3

REPORT INFORMATION
  Report Type: 
  Country: None (occurrence: None)
  Receive Date: 20110812
  Receipt Date: 20110805
  Transmission Date: 20111222
  Serious: Yes (Other)
  Sender: FDA-Public Use
  Company Number: IN-B.I. PHARMACEUTICALS,INC./RIDGEFIELD-2011-DE-04482GD

PATIENT

DRUGS (7)
  1. OXYGEN [Concomitant]
     Indication: INDUCTION AND MAINTENANCE OF ANAESTHESIA
     Route: 055
  2. NITROUS OXIDE [Concomitant]
     Indication: INDUCTION AND MAINTENANCE OF ANAESTHESIA
     Dosage: STRENGTH: 60%
     Route: 055
  3. MIDAZOLAM HCL [Concomitant]
     Indication: PREMEDICATION
     Dosage: 0.4 MG/KG
     Route: 048
  4. CLONIDINE [Suspect]
     Indication: PROCEDURAL PAIN
     Dosage: 2 MCG/KG
     Route: 008
  5. HALOTHANE [Concomitant]
     Indication: INDUCTION OF ANAESTHESIA
     Dosage: STRENGTH: 2-3%
     Route: 055
  6. ROPIVACAINE HYDROCHLORIDE [Suspect]
     Indication: PROCEDURAL PAIN
     Dosage: 0.25% 1 ML/KG
     Route: 008
  7. ISOFLURANE [Concomitant]
     Indication: MAINTENANCE OF ANAESTHESIA
     Dosage: STRENGTH: 2-3%
     Route: 055

REACTIONS (1)
  - HYPOTENSION [None]
